FAERS Safety Report 13710021 (Version 2)
Quarter: 2017Q4

REPORT INFORMATION
  Report Type: Report from Study
  Country: None (occurrence: US)
  Receive Date: 20170703
  Receipt Date: 20171012
  Transmission Date: 20180320
  Serious: Yes (Hospitalization, Other)
  Sender: FDA-Public Use
  Company Number: US-ABBVIE-17K-163-1999792-00

PATIENT
  Sex: Female

DRUGS (2)
  1. METFORMIN [Concomitant]
     Active Substance: METFORMIN HYDROCHLORIDE
     Indication: BLOOD GLUCOSE ABNORMAL
  2. HUMIRA [Suspect]
     Active Substance: ADALIMUMAB
     Indication: RHEUMATOID ARTHRITIS
     Route: 058
     Dates: start: 20160805

REACTIONS (13)
  - Glycosylated haemoglobin [Not Recovered/Not Resolved]
  - Computerised tomogram liver abnormal [Unknown]
  - Blood glucose increased [Unknown]
  - Hepatic enzyme increased [Not Recovered/Not Resolved]
  - Cystitis [Recovering/Resolving]
  - Hepatomegaly [Unknown]
  - Rheumatoid arthritis [Unknown]
  - Large intestine polyp [Recovered/Resolved]
  - Vomiting [Unknown]
  - Gastric polyps [Recovered/Resolved]
  - Blood triglycerides increased [Not Recovered/Not Resolved]
  - Drug ineffective [Recovered/Resolved]
  - Kidney infection [Recovering/Resolving]
